FAERS Safety Report 6687977-9 (Version None)
Quarter: 2010Q2

REPORT INFORMATION
  Report Type: 
  Country: None (occurrence: None)
  Receive Date: 20100420
  Receipt Date: 20100415
  Transmission Date: 20101027
  Serious: Yes (Other)
  Sender: FDA-Public Use
  Company Number: CHPA2010US06857

PATIENT
  Age: 87 Year
  Sex: Female
  Weight: 63.492 kg

DRUGS (2)
  1. VOLTAREN [Suspect]
     Indication: BACK PAIN
     Dosage: UNK, UNK
     Route: 061
     Dates: start: 20100401, end: 20100412
  2. VOLTAREN [Suspect]
     Indication: ARTHROPATHY

REACTIONS (5)
  - ANGINA PECTORIS [None]
  - BEDRIDDEN [None]
  - DRUG ADMINISTERED AT INAPPROPRIATE SITE [None]
  - OFF LABEL USE [None]
  - WRONG TECHNIQUE IN DRUG USAGE PROCESS [None]
